FAERS Safety Report 5580794-2 (Version None)
Quarter: 2007Q4

REPORT INFORMATION
  Report Type: 
  Country: None (occurrence: None)
  Receive Date: 20071130
  Receipt Date: 20070906
  Transmission Date: 20080405
  Serious: No
  Sender: FDA-Public Use
  Company Number: US200707004092

PATIENT
  Age: 75 Year
  Sex: Female
  Weight: 49.4 kg

DRUGS (6)
  1. BYETTA [Suspect]
     Indication: TYPE 2 DIABETES MELLITUS
     Dosage: 5 UG, DAILY (1/D), 5 UG, 2/D, 20 UG, DAILY (1/D) SUBCUTANEOUS
     Route: 058
     Dates: start: 20070501, end: 20070601
  2. BYETTA [Suspect]
     Indication: TYPE 2 DIABETES MELLITUS
     Dosage: 5 UG, DAILY (1/D), 5 UG, 2/D, 20 UG, DAILY (1/D) SUBCUTANEOUS
     Route: 058
     Dates: start: 20070601, end: 20070701
  3. BYETTA [Suspect]
     Indication: TYPE 2 DIABETES MELLITUS
     Dosage: 5 UG, DAILY (1/D), 5 UG, 2/D, 20 UG, DAILY (1/D) SUBCUTANEOUS
     Route: 058
     Dates: start: 20070701
  4. BYETTA [Suspect]
  5. METFORMIN HCL [Concomitant]
  6. GLUCOVANCE [Concomitant]

REACTIONS (6)
  - BLOOD GLUCOSE INCREASED [None]
  - DECREASED APPETITE [None]
  - DRUG INEFFECTIVE [None]
  - NAUSEA [None]
  - VOMITING [None]
  - WEIGHT DECREASED [None]
